FAERS Safety Report 19014882 (Version 3)
Quarter: 2021Q2

REPORT INFORMATION
  Report Type: Report from Study
  Country: None (occurrence: US)
  Receive Date: 20210317
  Receipt Date: 20210616
  Transmission Date: 20210717
  Serious: Yes (Hospitalization)
  Sender: FDA-Public Use
  Company Number: US-ABBVIE-21K-163-3815503-00

PATIENT
  Age: 47 Year
  Sex: Female
  Weight: 81.72 kg

DRUGS (1)
  1. HUMIRA [Suspect]
     Active Substance: ADALIMUMAB
     Indication: HIDRADENITIS
     Dosage: CITRATE FREE
     Route: 058
     Dates: end: 20210212

REACTIONS (5)
  - Debridement [Unknown]
  - Post procedural infection [Unknown]
  - Skin graft [Unknown]
  - Therapeutic product effect incomplete [Unknown]
  - Furuncle [Unknown]

NARRATIVE: CASE EVENT DATE: 20210113
